FAERS Safety Report 9451060 (Version 1)
Quarter: 2013Q3

REPORT INFORMATION
  Report Type: Spontaneous
  Country: US (occurrence: None)
  Receive Date: 20130807
  Receipt Date: 20130807
  Transmission Date: 20140515
  Serious: Yes (Disabling)
  Sender: FDA-Public Use
  Company Number: 201307-US-001151

PATIENT
  Sex: Male

DRUGS (2)
  1. FLEET PHOSPHO-SODA [Suspect]
     Indication: COLONOSCOPY
     Route: 048
  2. INSULIN (INSULIN) [Concomitant]

REACTIONS (3)
  - Renal impairment [None]
  - Parosmia [None]
  - Coronary artery stenosis [None]
